APPROVED DRUG PRODUCT: HYDROCORTISONE AND ACETIC ACID
Active Ingredient: ACETIC ACID, GLACIAL; HYDROCORTISONE
Strength: 2%;1%
Dosage Form/Route: SOLUTION/DROPS;OTIC
Application: A088759 | Product #001 | TE Code: AT
Applicant: TARO PHARMACEUTICAL INDUSTRIES LTD
Approved: Mar 4, 1985 | RLD: Yes | RS: Yes | Type: RX